FAERS Safety Report 22541801 (Version 1)
Quarter: 2023Q2

REPORT INFORMATION
  Report Type: Spontaneous
  Country: US (occurrence: None)
  Receive Date: 20230608
  Receipt Date: 20230608
  Transmission Date: 20230721
  Serious: Yes (Life-Threatening)
  Sender: FDA-Public Use
  Company Number: None

PATIENT
  Age: 53 Year
  Sex: Male
  Weight: 76.3 kg

DRUGS (1)
  1. YESCARTA [Suspect]
     Active Substance: AXICABTAGENE CILOLEUCEL
     Indication: Diffuse large B-cell lymphoma
     Dates: start: 20230103

REACTIONS (4)
  - Immune effector cell-associated neurotoxicity syndrome [None]
  - Delirium [None]
  - Cytokine release syndrome [None]
  - Pneumonia fungal [None]

NARRATIVE: CASE EVENT DATE: 20230104
